FAERS Safety Report 23494022 (Version 1)
Quarter: 2024Q1

REPORT INFORMATION
  Report Type: Spontaneous
  Country: GB (occurrence: GB)
  Receive Date: 20240207
  Receipt Date: 20240207
  Transmission Date: 20240410
  Serious: Yes (Hospitalization, Other)
  Sender: FDA-Public Use
  Company Number: None

PATIENT
  Age: 50 Year
  Sex: Female

DRUGS (1)
  1. LUPRON DEPOT [Suspect]
     Active Substance: LEUPROLIDE ACETATE
     Indication: Abdominal pain
     Dosage: MONTHLY
     Route: 065
     Dates: start: 20221117, end: 20230502

REACTIONS (1)
  - Retinal injury [Not Recovered/Not Resolved]

NARRATIVE: CASE EVENT DATE: 20230107
